FAERS Safety Report 7606957-X (Version None)
Quarter: 2011Q3

REPORT INFORMATION
  Report Type: 
  Country: None (occurrence: None)
  Receive Date: 20110713
  Receipt Date: 20101117
  Transmission Date: 20111222
  Serious: Yes (Other)
  Sender: FDA-Public Use
  Company Number: JP-PFIZER INC-2010159609

PATIENT
  Age: 66 Year
  Sex: Male

DRUGS (5)
  1. OMEPRAZOLE [Suspect]
     Dosage: 10 MG, UNK
     Route: 065
  2. LIPITOR [Suspect]
     Dosage: 5 MG, UNK
     Route: 065
  3. OLMESARTAN MEDOXOMIL [Suspect]
     Indication: ESSENTIAL HYPERTENSION
     Dosage: 10 MG, 1X/DAY
     Route: 048
     Dates: start: 20100418
  4. AMARYL [Suspect]
     Dosage: 1 MG, UNK
     Route: 065
  5. AMLODIPINE BESYLATE [Suspect]
     Dosage: UNK
     Route: 065

REACTIONS (1)
  - RENAL FAILURE CHRONIC [None]
